FAERS Safety Report 25200910 (Version 1)
Quarter: 2025Q2

REPORT INFORMATION
  Report Type: Spontaneous
  Country: CN (occurrence: CN)
  Receive Date: 20250415
  Receipt Date: 20250415
  Transmission Date: 20250716
  Serious: Yes (Death)
  Sender: ABBVIE
  Company Number: CN-PFIZER INC-PV202500039855

PATIENT
  Age: 93 Year
  Sex: Female

DRUGS (1)
  1. AVIBACTAM SODIUM [Suspect]
     Active Substance: AVIBACTAM SODIUM
     Indication: Pneumonia klebsiella
     Dosage: 2.5 G, Q12H
     Route: 041

REACTIONS (2)
  - Death [Fatal]
  - Off label use [Unknown]
